FAERS Safety Report 4440847-9 (Version None)
Quarter: 2004Q3

REPORT INFORMATION
  Report Type: 
  Country: None (occurrence: None)
  Receive Date: 20040903
  Receipt Date: 20040902
  Transmission Date: 20050211
  Serious: Yes (Other)
  Sender: FDA-Public Use
  Company Number: FR-GLAXOSMITHKLINE-B0344156A

PATIENT
  Age: 56 Year
  Sex: Male

DRUGS (2)
  1. ZYBAN [Suspect]
     Dosage: 150MG SEE DOSAGE TEXT
     Route: 048
     Dates: start: 20040306
  2. LEXOMIL [Concomitant]
     Indication: ANXIETY

REACTIONS (9)
  - ANXIETY [None]
  - DRUG DEPENDENCE [None]
  - EUPHORIC MOOD [None]
  - EXCITABILITY [None]
  - FORMICATION [None]
  - MALAISE [None]
  - MEDICATION ERROR [None]
  - PALLOR [None]
  - TRANSAMINASES INCREASED [None]
